FAERS Safety Report 5293247-6 (Version None)
Quarter: 2007Q2

REPORT INFORMATION
  Report Type: 
  Country: None (occurrence: None)
  Receive Date: 20070411
  Receipt Date: 20070327
  Transmission Date: 20071010
  Serious: Yes (Other)
  Sender: FDA-Public Use
  Company Number: DE-PURDUE-DEU_2007_0003202

PATIENT
  Age: 50 Year
  Sex: Male

DRUGS (1)
  1. MORPHINE SULFATE [Suspect]
     Indication: BACK PAIN
     Dosage: UNK, UNK
     Route: 037

REACTIONS (4)
  - DELUSION [None]
  - ENCEPHALOPATHY [None]
  - HALLUCINATION [None]
  - HYPERTENSIVE CRISIS [None]
